FAERS Safety Report 8530379-0 (Version None)
Quarter: 2012Q3

REPORT INFORMATION
  Report Type: 
  Country: None (occurrence: None)
  Receive Date: 20120723
  Receipt Date: 20120713
  Transmission Date: 20120928
  Serious: Yes (Hospitalization)
  Sender: FDA-Public Use
  Company Number: GB-ASTRAZENECA-2012SE43936

PATIENT
  Age: 75 Year
  Sex: Male
  Weight: 68.9 kg

DRUGS (8)
  1. VANDETANIB [Suspect]
     Indication: PANCREATIC CARCINOMA
     Route: 048
     Dates: start: 20120605, end: 20120619
  2. PRAVASTATIN SODIUM [Concomitant]
     Indication: HYPERLIPIDAEMIA
     Dates: start: 19980601
  3. FELODIPINE [Concomitant]
     Indication: HYPERTENSION
     Dates: start: 19960601
  4. GEMCITABINE [Suspect]
     Indication: PANCREATIC CARCINOMA
     Route: 042
     Dates: start: 20120508
  5. ORAMORPH SR [Concomitant]
     Indication: ANALGESIC THERAPY
     Dates: start: 20120401
  6. PAROXETINE [Concomitant]
     Indication: DEPRESSION
     Dates: start: 19960501
  7. METFORMIN HYDROCHLORIDE [Concomitant]
     Indication: DIABETES MELLITUS
     Dates: start: 19980601
  8. GLICLAZIDE [Concomitant]
     Indication: DIABETES MELLITUS
     Dates: start: 19980601

REACTIONS (2)
  - RENAL FAILURE ACUTE [None]
  - HYPERGLYCAEMIA [None]
